FAERS Safety Report 19152850 (Version 2)
Quarter: 2021Q2

REPORT INFORMATION
  Report Type: Report from Study
  Country: ES (occurrence: ES)
  Receive Date: 20210419
  Receipt Date: 20210504
  Transmission Date: 20210717
  Serious: Yes (Other)
  Sender: FDA-Public Use
  Company Number: ES-PFIZER INC-2021421732

PATIENT
  Age: 75 Year
  Sex: Female

DRUGS (1)
  1. MEROPENEM. [Suspect]
     Active Substance: MEROPENEM
     Indication: COVID-19
     Dosage: UNK

REACTIONS (3)
  - Muscular weakness [Unknown]
  - Myopathy [Unknown]
  - Neuropathy peripheral [Unknown]
